FAERS Safety Report 4675529-1 (Version None)
Quarter: 2005Q2

REPORT INFORMATION
  Report Type: 
  Country: None (occurrence: None)
  Receive Date: 20050527
  Receipt Date: 20050405
  Transmission Date: 20051028
  Serious: No
  Sender: FDA-Public Use
  Company Number: US-BRISTOL-MYERS SQUIBB COMPANY-12922308

PATIENT
  Age: 26 Year
  Sex: Male

DRUGS (4)
  1. ABILIFY [Suspect]
  2. LITHIUM CARBONATE [Concomitant]
  3. COUMADIN [Concomitant]
  4. LAMICTAL [Concomitant]

REACTIONS (3)
  - HYPERACUSIS [None]
  - NAUSEA [None]
  - VISUAL DISTURBANCE [None]
